FAERS Safety Report 24289564 (Version 4)
Quarter: 2024Q4

REPORT INFORMATION
  Report Type: Spontaneous
  Country: NZ (occurrence: NZ)
  Receive Date: 20240906
  Receipt Date: 20241025
  Transmission Date: 20250115
  Serious: Yes (Other)
  Sender: JOHNSON AND JOHNSON
  Company Number: NZ-JNJFOC-20240900249

PATIENT
  Age: 57 Year
  Sex: Female
  Weight: 100.7 kg

DRUGS (7)
  1. INVEGA TRINZA [Suspect]
     Active Substance: PALIPERIDONE PALMITATE
     Indication: Product used for unknown indication
     Route: 030
     Dates: start: 20240709
  2. INVEGA TRINZA [Suspect]
     Active Substance: PALIPERIDONE PALMITATE
  3. INVEGA TRINZA [Suspect]
     Active Substance: PALIPERIDONE PALMITATE
  4. MVITE [Concomitant]
     Dosage: 1 TABLET DAILY
  5. ACETAMINOPHEN [Concomitant]
     Active Substance: ACETAMINOPHEN
     Dosage: 1000MG QID
  6. IBUPROFEN [Concomitant]
     Active Substance: IBUPROFEN
     Dosage: 400MG QID
  7. HABITROL [Concomitant]
     Active Substance: NICOTINE
     Dosage: 21MG TRANSDERMALLY OVER 24 HOURS
     Route: 062

REACTIONS (1)
  - Acute psychosis [Recovered/Resolved]
